FAERS Safety Report 6284532-X (Version None)
Quarter: 2009Q3

REPORT INFORMATION
  Report Type: 
  Country: None (occurrence: None)
  Receive Date: 20090727
  Receipt Date: 20090717
  Transmission Date: 20100115
  Serious: Yes (Hospitalization)
  Sender: FDA-Public Use
  Company Number: IE-AMGEN-QUU356438

PATIENT
  Sex: Female

DRUGS (4)
  1. NEULASTA [Suspect]
     Indication: CHEMOTHERAPY
     Route: 065
     Dates: start: 20090625
  2. ALOXI [Suspect]
  3. ADRIAMYCIN RDF [Concomitant]
     Dates: start: 20090624
  4. CYCLOPHOSPHAMIDE [Concomitant]
     Dates: start: 20090624

REACTIONS (4)
  - CHEST PAIN [None]
  - DYSPNOEA [None]
  - HEADACHE [None]
  - SUPRAPUBIC PAIN [None]
